FAERS Safety Report 6577894-7 (Version None)
Quarter: 2010Q1

REPORT INFORMATION
  Report Type: 
  Country: None (occurrence: None)
  Receive Date: 20100211
  Receipt Date: 20100205
  Transmission Date: 20100710
  Serious: Yes (Other)
  Sender: FDA-Public Use
  Company Number: ES-ROCHE-683811

PATIENT
  Sex: Male

DRUGS (2)
  1. AVASTIN [Suspect]
     Indication: RENAL CANCER
     Dosage: FREQUENCY: CYCLIC
     Route: 065
  2. AVASTIN [Suspect]
     Route: 065

REACTIONS (2)
  - GINGIVITIS [None]
  - MUCOSAL INFLAMMATION [None]
